FAERS Safety Report 25310853 (Version 1)
Quarter: 2025Q2

REPORT INFORMATION
  Report Type: Report from Study
  Country: US (occurrence: US)
  Receive Date: 20250514
  Receipt Date: 20250514
  Transmission Date: 20250717
  Serious: No
  Sender: SUNOVION
  Company Number: US-SMPA-2025SPA004912AA

PATIENT

DRUGS (1)
  1. ORGOVYX [Suspect]
     Active Substance: RELUGOLIX
     Indication: Prostate cancer
     Dosage: 120 MG, QD
     Route: 048
     Dates: start: 20250226

REACTIONS (8)
  - Akathisia [Unknown]
  - Nasopharyngitis [Unknown]
  - Blister [Unknown]
  - Feeling abnormal [Unknown]
  - Anxiety [Unknown]
  - Rash [Unknown]
  - Hot flush [Unknown]
  - Incorrect dose administered [Unknown]
